FAERS Safety Report 7479535-3 (Version None)
Quarter: 2011Q2

REPORT INFORMATION
  Report Type: 
  Country: None (occurrence: None)
  Receive Date: 20110513
  Receipt Date: 20110504
  Transmission Date: 20111010
  Serious: Yes (Hospitalization)
  Sender: FDA-Public Use
  Company Number: US-ASTRAZENECA-2010SE54366

PATIENT
  Age: 49 Year
  Sex: Female
  Weight: 77.1 kg

DRUGS (7)
  1. TEGRETOL [Concomitant]
  2. SEROQUEL [Suspect]
     Indication: BIPOLAR DISORDER
     Route: 048
     Dates: start: 20050101, end: 20101001
  3. SEROQUEL [Suspect]
     Route: 048
  4. SEROQUEL [Suspect]
     Route: 048
  5. SEROQUEL [Suspect]
     Route: 048
  6. SEROQUEL [Suspect]
     Indication: INSOMNIA
     Route: 048
     Dates: start: 20050101, end: 20101001
  7. SEROQUEL [Suspect]
     Route: 048

REACTIONS (8)
  - VOMITING [None]
  - INSOMNIA [None]
  - MALAISE [None]
  - ANXIETY [None]
  - HIP SURGERY [None]
  - DRUG INEFFECTIVE FOR UNAPPROVED INDICATION [None]
  - INFLUENZA [None]
  - DRUG DOSE OMISSION [None]
